FAERS Safety Report 4613622-X (Version None)
Quarter: 2005Q1

REPORT INFORMATION
  Report Type: 
  Country: None (occurrence: None)
  Receive Date: 20050318
  Receipt Date: 20050318
  Transmission Date: 20050727
  Serious: Yes (Hospitalization, Other)
  Sender: FDA-Public Use
  Company Number: None

PATIENT
  Age: 53 Year
  Sex: Male
  Weight: 66.7 kg

DRUGS (9)
  1. HYDROCHLOROTHIAZIDE [Suspect]
     Indication: OSTEOMYELITIS
     Dosage: 25 MG DAILY
     Dates: start: 20041001, end: 20041101
  2. UNASYN [Suspect]
     Indication: HYPERTENSION
     Dosage: 3 GRAMS Q 6 H
     Dates: start: 20041001, end: 20041101
  3. ROSIGLITAZONE [Concomitant]
  4. NPH INSULIN [Concomitant]
  5. METFORMIN [Concomitant]
  6. SIMVASTATIN [Concomitant]
  7. ASPIRIN [Concomitant]
  8. RANITIDINE [Concomitant]
  9. GLIPIZIDE [Concomitant]

REACTIONS (2)
  - NEPHRITIS INTERSTITIAL [None]
  - RENAL FAILURE ACUTE [None]
